FAERS Safety Report 16727431 (Version 2)
Quarter: 2020Q1

REPORT INFORMATION
  Report Type: Report from Study
  Country: US (occurrence: US)
  Receive Date: 20190822
  Receipt Date: 20200127
  Transmission Date: 20200409
  Serious: No
  Sender: FDA-Public Use
  Company Number: US-SA-2019SA232185

PATIENT
  Age: 49 Year
  Sex: Male

DRUGS (2)
  1. DUPILUMAB [Suspect]
     Active Substance: DUPILUMAB
     Indication: DERMATITIS
     Dosage: UNK
     Route: 058
     Dates: start: 2019, end: 2019
  2. DUPILUMAB [Suspect]
     Active Substance: DUPILUMAB
     Dosage: 300 MG, QOW
     Route: 058

REACTIONS (4)
  - Peripheral swelling [Not Recovered/Not Resolved]
  - Neck mass [Not Recovered/Not Resolved]
  - Skin discolouration [Unknown]
  - Pruritus [Unknown]

NARRATIVE: CASE EVENT DATE: 2019
